FAERS Safety Report 9248434 (Version 1)
Quarter: 2013Q1

REPORT INFORMATION
  Report Type: Spontaneous
  Country: US (occurrence: None)
  Receive Date: 20121113
  Receipt Date: 20121113
  Transmission Date: 20140127
  Serious: Yes (Disabling)
  Sender: FDA-Public Use
  Company Number: PHEH2012US007198

PATIENT
  Age: 5 Year
  Sex: Male
  Weight: 20.9 kg

DRUGS (8)
  1. OXCARBAZEPINE [Suspect]
     Indication: CONVULSION
     Route: 048
  2. TRILEPTAL [Suspect]
     Indication: CONVULSION
     Dates: start: 20090412
  3. ADVAIR (FLUTICASONE PROPIONATE, SALMETEROL XINAFOATE) [Concomitant]
  4. FLUTICASONE PROTIONATE [Concomitant]
  5. KAPVAY [Concomitant]
  6. LEVOCETIRIZINE DIHYDROCHLORIDE (LEVOCETIRIZINE DIHYDROCHLORIDE) [Concomitant]
  7. CYPROHEPTADINE HYDROCHLORIDE (CYPROHEPTADINE HYDROCHLORIDE) [Concomitant]
  8. XOMING [Concomitant]

REACTIONS (3)
  - Convulsion [None]
  - Headache [None]
  - Nausea [None]
